FAERS Safety Report 17523935 (Version 1)
Quarter: 2020Q1

REPORT INFORMATION
  Report Type: Spontaneous
  Country: US (occurrence: US)
  Receive Date: 20200310
  Receipt Date: 20200310
  Transmission Date: 20200409
  Serious: No
  Sender: FDA-Public Use
  Company Number: US-AMNEAL PHARMACEUTICALS-2019-IPXL-00918

PATIENT
  Age: 59 Year
  Sex: Female
  Weight: 48 kg

DRUGS (3)
  1. DEXEDRINE [Concomitant]
     Active Substance: DEXTROAMPHETAMINE SULFATE
     Indication: BLOOD PRESSURE DECREASED
     Dosage: 5MG ONCE A DAY
     Route: 065
  2. NITROFURANTOIN MACROCRYSTALS [Suspect]
     Active Substance: NITROFURANTOIN
     Dosage: 100 MILLIGRAM, BEDTIME
     Route: 048
     Dates: start: 20190502, end: 20190503
  3. NITROFURANTOIN MACROCRYSTALS [Suspect]
     Active Substance: NITROFURANTOIN
     Indication: URINARY TRACT INFECTION
     Dosage: 100 MILLIGRAM, MORNING
     Route: 048
     Dates: start: 20190502, end: 20190503

REACTIONS (17)
  - Tinnitus [Not Recovered/Not Resolved]
  - Abdominal pain upper [Not Recovered/Not Resolved]
  - Neuropathy peripheral [Not Recovered/Not Resolved]
  - Paraesthesia oral [Unknown]
  - Flatulence [Unknown]
  - Oropharyngeal pain [Unknown]
  - Hypoaesthesia oral [Unknown]
  - Cough [Not Recovered/Not Resolved]
  - Bedridden [Unknown]
  - Arthralgia [Unknown]
  - Chest discomfort [Unknown]
  - Dysgeusia [Not Recovered/Not Resolved]
  - Pain [Not Recovered/Not Resolved]
  - Vision blurred [Unknown]
  - Allergic sinusitis [Unknown]
  - Fatigue [Unknown]
  - Chest pain [Unknown]

NARRATIVE: CASE EVENT DATE: 20190502
